FAERS Safety Report 14707491 (Version 1)
Quarter: 2018Q2

REPORT INFORMATION
  Report Type: Spontaneous
  Country: IT (occurrence: IT)
  Receive Date: 20180403
  Receipt Date: 20180403
  Transmission Date: 20180711
  Serious: Yes (Other)
  Sender: FDA-Public Use
  Company Number: IT-ROCHE-2099036

PATIENT

DRUGS (4)
  1. RITUXIMAB. [Suspect]
     Active Substance: RITUXIMAB
     Indication: MANTLE CELL LYMPHOMA
     Dosage: 375 MG/M2 ON DAY 1, EVERY 4 WEEKS FOR UP TO SIX CYCLES
     Route: 042
  2. CYTARABINE. [Suspect]
     Active Substance: CYTARABINE
     Indication: MANTLE CELL LYMPHOMA
     Dosage: 500 MG/M2 ON DAYS 2-4EVERY 4 WEEKS FOR UP TO SIX CYCLES
     Route: 042
  3. BENDAMUSTINE [Suspect]
     Active Substance: BENDAMUSTINE
     Indication: MANTLE CELL LYMPHOMA
     Dosage: 70 MG/M2, ON DAYS 2 AND 3, EVERY 4 WEEKS FOR UP TO SIX CYCLES
     Route: 042
  4. ALLOPURINOL. [Concomitant]
     Active Substance: ALLOPURINOL
     Indication: PROPHYLAXIS
     Dosage: 100-300 MG
     Route: 065

REACTIONS (2)
  - Myocardial infarction [Unknown]
  - Cerebral ischaemia [Unknown]
